FAERS Safety Report 5029360-8 (Version None)
Quarter: 2006Q2

REPORT INFORMATION
  Report Type: 
  Country: None (occurrence: None)
  Receive Date: 20060614
  Receipt Date: 20060526
  Transmission Date: 20061013
  Serious: Yes (Other)
  Sender: FDA-Public Use
  Company Number: US200603000238

PATIENT
  Age: 16 Year
  Sex: Male

DRUGS (2)
  1. HUMATROPE [Suspect]
     Indication: GROWTH RETARDATION
     Dosage: 2.2 MG, DAILY (1/D)
     Dates: start: 20050211, end: 20060221
  2. HUMATROPEN (HUMATROPEN) PEN,REUSABLE [Concomitant]

REACTIONS (2)
  - MEDULLOBLASTOMA [None]
  - RECURRENT CANCER [None]
